FAERS Safety Report 12550449 (Version 1)
Quarter: 2016Q3

REPORT INFORMATION
  Report Type: Report from Study
  Country: US (occurrence: US)
  Receive Date: 20160712
  Receipt Date: 20160712
  Transmission Date: 20161109
  Serious: Yes (Hospitalization)
  Sender: FDA-Public Use
  Company Number: US-ACTELION-A-NJ2015-124182

PATIENT
  Age: 73 Year
  Sex: Female

DRUGS (3)
  1. REVATIO [Concomitant]
     Active Substance: SILDENAFIL CITRATE
  2. TYVASO [Concomitant]
     Active Substance: TREPROSTINIL
  3. OPSUMIT [Suspect]
     Active Substance: MACITENTAN
     Indication: PULMONARY HYPERTENSION
     Dosage: 10 MG, QD
     Route: 048
     Dates: start: 20150416

REACTIONS (9)
  - Sinusitis [Not Recovered/Not Resolved]
  - Face injury [Unknown]
  - Weight increased [Unknown]
  - Dyspnoea [Recovering/Resolving]
  - Malaise [Unknown]
  - Fall [Unknown]
  - Oropharyngeal pain [Unknown]
  - Fluid retention [Unknown]
  - Hypersensitivity [Unknown]
